FAERS Safety Report 5595490-5 (Version None)
Quarter: 2008Q1

REPORT INFORMATION
  Report Type: 
  Country: None (occurrence: None)
  Receive Date: 20080116
  Receipt Date: 20080116
  Transmission Date: 20080703
  Serious: Yes (Other)
  Sender: FDA-Public Use
  Company Number: None

PATIENT
  Sex: Female
  Weight: 49.8957 kg

DRUGS (2)
  1. BUPROPION   150MG   TEVA [Suspect]
     Indication: DEPRESSION
     Dosage: 150MG  BID  PO
     Route: 048
     Dates: start: 20080102, end: 20080114
  2. BUPROPION   150MG   TEVA [Suspect]
     Indication: SMOKING CESSATION THERAPY
     Dosage: 150MG  BID  PO
     Route: 048
     Dates: start: 20080102, end: 20080114

REACTIONS (8)
  - ANXIETY [None]
  - DEPRESSION [None]
  - DIZZINESS [None]
  - FEELING ABNORMAL [None]
  - GASTRIC DISORDER [None]
  - PHARMACEUTICAL PRODUCT COMPLAINT [None]
  - TACHYCARDIA [None]
  - TREMOR [None]
